FAERS Safety Report 17594363 (Version 3)
Quarter: 2020Q2

REPORT INFORMATION
  Report Type: Report from Study
  Country: CO (occurrence: CO)
  Receive Date: 20200327
  Receipt Date: 20200427
  Transmission Date: 20200713
  Serious: Yes (Death, Hospitalization, Other)
  Sender: FDA-Public Use
  Company Number: CO-UNITED THERAPEUTICS-UNT-2020-004833

PATIENT

DRUGS (6)
  1. TREPROSTINIL SODIUM (SQ) [Suspect]
     Active Substance: TREPROSTINIL SODIUM
     Indication: PULMONARY ARTERIAL HYPERTENSION
     Dosage: 0.031 ?G/KG, CONTINUING (AT INFUSION RATE OF 0.020 CC/H)
     Route: 058
     Dates: start: 20190222, end: 20200318
  2. AMBRISENTAN [Concomitant]
     Active Substance: AMBRISENTAN
     Indication: PULMONARY HYPERTENSION
     Dosage: 10 MG, QD
     Route: 048
     Dates: start: 201902, end: 20200318
  3. FUROSEMIDA [Concomitant]
     Active Substance: FUROSEMIDE
     Indication: CARDIOMYOPATHY
     Dosage: 40 MG, Q12H
     Route: 048
     Dates: start: 201902, end: 20200318
  4. NEBIVOLOL. [Concomitant]
     Active Substance: NEBIVOLOL
     Indication: CARDIOMYOPATHY
     Dosage: 2.5 MG, QD
     Route: 048
     Dates: start: 201902, end: 20200318
  5. SPIRONOLACTONE. [Concomitant]
     Active Substance: SPIRONOLACTONE
     Indication: CARDIOMYOPATHY
     Dosage: 25 MG, QD
     Route: 048
     Dates: start: 201902, end: 20200318
  6. SILDENAFIL. [Concomitant]
     Active Substance: SILDENAFIL
     Indication: PULMONARY HYPERTENSION
     Dosage: 50 MG, Q8H
     Route: 048
     Dates: start: 201902, end: 20200318

REACTIONS (7)
  - Disease progression [Fatal]
  - Ascites [Unknown]
  - Cardiac failure [Fatal]
  - Cardio-respiratory arrest [Fatal]
  - Lethargy [Unknown]
  - Respiratory failure [Unknown]
  - General physical health deterioration [Unknown]
